FAERS Safety Report 6250332-X (Version None)
Quarter: 2009Q2

REPORT INFORMATION
  Report Type: 
  Country: None (occurrence: None)
  Receive Date: 20090626
  Receipt Date: 20090626
  Transmission Date: 20091009
  Serious: Yes (Other)
  Sender: FDA-Public Use
  Company Number: None

PATIENT
  Age: 57 Year
  Sex: Male
  Weight: 82.1011 kg

DRUGS (1)
  1. ZICAM COLD REMEDY NASAL GEL PER CONTAINER MATRIXX INITIATIVES [Suspect]
     Indication: NASOPHARYNGITIS
     Dosage: 1 SQUIRT EACH NOSTRIL ONCE/ DAY
     Dates: start: 20051201, end: 20051225

REACTIONS (3)
  - ANOSMIA [None]
  - HYPOGEUSIA [None]
  - NASAL DISCOMFORT [None]
